FAERS Safety Report 13107058 (Version 2)
Quarter: 2017Q1

REPORT INFORMATION
  Report Type: Spontaneous
  Country: CA (occurrence: CA)
  Receive Date: 20170111
  Receipt Date: 20170131
  Transmission Date: 20170428
  Serious: Yes (Other)
  Sender: FDA-Public Use
  Company Number: CA-ASTRAZENECA-2017SE02032

PATIENT
  Age: 29119 Day
  Sex: Female

DRUGS (4)
  1. CRESTOR [Suspect]
     Active Substance: ROSUVASTATIN CALCIUM
     Indication: HYPERCHOLESTEROLAEMIA
     Route: 048
     Dates: start: 20111013, end: 20170106
  2. METOPROLOL. [Concomitant]
     Active Substance: METOPROLOL
     Dosage: 50.0MG UNKNOWN
  3. VALSARTAN. [Concomitant]
     Active Substance: VALSARTAN
     Dosage: 50.0MG UNKNOWN
  4. EZETIMIBE. [Concomitant]
     Active Substance: EZETIMIBE

REACTIONS (2)
  - Non-Hodgkin^s lymphoma [Recovered/Resolved]
  - Muscle spasms [Recovered/Resolved]

NARRATIVE: CASE EVENT DATE: 20111013
